FAERS Safety Report 7236290-X (Version None)
Quarter: 2011Q1

REPORT INFORMATION
  Report Type: 
  Country: None (occurrence: None)
  Receive Date: 20110120
  Receipt Date: 20110110
  Transmission Date: 20110831
  Serious: Yes (Hospitalization)
  Sender: FDA-Public Use
  Company Number: US-ELI_LILLY_AND_COMPANY-US201008007010

PATIENT
  Sex: Female

DRUGS (15)
  1. BYSTOLIC [Concomitant]
     Dosage: 10 MG, EACH MORNING
  2. ASPIRIN [Concomitant]
     Dosage: 81 MG, EACH MORNING
  3. ALISKIREN [Concomitant]
  4. DICLOFENAC SODIUM [Concomitant]
     Dosage: 75 MG, 2/D
  5. TRAVATAN [Concomitant]
     Indication: GLAUCOMA
     Dosage: 0.004 %, EACH EVENING
  6. FORTEO [Suspect]
     Indication: OSTEOPOROSIS
     Dosage: 20 UG, DAILY (1/D)
  7. FORTEO [Suspect]
     Dosage: 20 UG, DAILY (1/D)
  8. CARDIZEM [Concomitant]
     Dosage: 240 MG, DAILY (1/D)
  9. LOVASTATIN [Concomitant]
     Dosage: 10 MG, UNK
  10. FORTEO [Suspect]
     Dosage: 20 UG, DAILY (1/D)
  11. LOVASTATIN [Concomitant]
     Dosage: 40 MG, EACH EVENING
  12. HYDROCHLOROTHIAZIDE [Concomitant]
     Dosage: 25 MG, EACH MORNING
  13. TRAVATAN [Concomitant]
     Dosage: 0.04 %, UNK
  14. TIMOPTIC [Concomitant]
     Dosage: 0.5 %, EACH EVENING
  15. DIURETICS [Concomitant]
     Dosage: 10 MG, UNK

REACTIONS (12)
  - BURNING SENSATION [None]
  - DISCOMFORT [None]
  - VISUAL IMPAIRMENT [None]
  - WALKING AID USER [None]
  - FATIGUE [None]
  - WEIGHT INCREASED [None]
  - MUSCULOSKELETAL STIFFNESS [None]
  - MUSCULOSKELETAL DISCOMFORT [None]
  - PAIN [None]
  - EYE IRRITATION [None]
  - BACK PAIN [None]
  - GROIN PAIN [None]
